FAERS Safety Report 21527122 (Version 2)
Quarter: 2022Q4

REPORT INFORMATION
  Report Type: Spontaneous
  Country: GB (occurrence: GB)
  Receive Date: 20221031
  Receipt Date: 20221229
  Transmission Date: 20230113
  Serious: Yes (Hospitalization, Other)
  Sender: FDA-Public Use
  Company Number: GB-LDELTA-NLLD0039278

PATIENT
  Age: 42 Year
  Sex: Female

DRUGS (9)
  1. ATORVASTATIN [Suspect]
     Active Substance: ATORVASTATIN
     Dosage: 8 X 20MG - OVERDOSE; ;
  2. FERROUS SULFATE [Suspect]
     Active Substance: FERROUS SULFATE
     Dosage: 8 X 200MG  - OVERDOSE; ;
  3. HALOPERIDOL [Suspect]
     Active Substance: HALOPERIDOL
     Dosage: 16 X 5MG - OVERDOSE?32 X 5MG - OVERDOSE; ;
  4. LAMOTRIGINE [Suspect]
     Active Substance: LAMOTRIGINE
     Dosage: 24 X 50MG - OVERDOSE; ;
  5. PIRENZEPINE [Suspect]
     Active Substance: PIRENZEPINE
     Dosage: 58 X 30MG - OVERDOSE; ;
  6. CLOZAPINE [Suspect]
     Active Substance: CLOZAPINE
     Indication: Schizophrenia
     Dates: start: 20071008, end: 20110415
  7. CLOZAPINE [Suspect]
     Active Substance: CLOZAPINE
     Indication: Schizophrenia
     Dates: start: 20111104, end: 20130123
  8. CLOZAPINE [Suspect]
     Active Substance: CLOZAPINE
     Indication: Schizophrenia
     Dates: start: 20201019, end: 20220829
  9. CLOZAPINE [Suspect]
     Active Substance: CLOZAPINE
     Indication: Schizophrenia
     Dosage: 116 X 100MG AND 87 X 50MG - OVERDOSE; ;
     Dates: start: 20220829, end: 20220829

REACTIONS (5)
  - Confusional state [Unknown]
  - Troponin increased [Not Recovered/Not Resolved]
  - Atrial flutter [Not Recovered/Not Resolved]
  - Intentional overdose [Unknown]
  - Overdose [Unknown]

NARRATIVE: CASE EVENT DATE: 20220829
